FAERS Safety Report 16395510 (Version 7)
Quarter: 2021Q1

REPORT INFORMATION
  Report Type: Spontaneous
  Country: DE (occurrence: DE)
  Receive Date: 20190605
  Receipt Date: 20210114
  Transmission Date: 20210419
  Serious: Yes (Other)
  Sender: FDA-Public Use
  Company Number: DE-BAUSCH-BL-2019-015852

PATIENT
  Age: 50 Year
  Sex: Female

DRUGS (25)
  1. RAMIPRIL. [Concomitant]
     Active Substance: RAMIPRIL
     Indication: HYPERTENSION
     Dosage: 1?0?1
  2. RAMIPRIL. [Concomitant]
     Active Substance: RAMIPRIL
  3. BACLOFENUM [Concomitant]
     Dosage: 15 MG ? 15 MG ? 25 MG
     Route: 048
  4. AMITRIPTYLINE [Suspect]
     Active Substance: AMITRIPTYLINE
     Indication: PRODUCT USED FOR UNKNOWN INDICATION
     Dosage: 0?0?1
     Route: 065
  5. OCREVUS [Suspect]
     Active Substance: OCRELIZUMAB
     Indication: RELAPSING-REMITTING MULTIPLE SCLEROSIS
     Route: 042
     Dates: start: 20180503, end: 20180503
  6. ASPIRIN. [Concomitant]
     Active Substance: ASPIRIN
     Indication: PRODUCT USED FOR UNKNOWN INDICATION
     Route: 048
  7. CARBAMAZEPINE. [Concomitant]
     Active Substance: CARBAMAZEPINE
     Indication: PRODUCT USED FOR UNKNOWN INDICATION
     Dosage: 1?0?0
     Route: 048
  8. CARBAMAZEPINE. [Concomitant]
     Active Substance: CARBAMAZEPINE
     Dosage: 2?0?1
     Dates: start: 20190801
  9. BACLOFENUM [Concomitant]
     Indication: PRODUCT USED FOR UNKNOWN INDICATION
  10. DEKRISTOL [Concomitant]
     Active Substance: CHOLECALCIFEROL
     Indication: PRODUCT USED FOR UNKNOWN INDICATION
  11. MAGNESIUM [Concomitant]
     Active Substance: MAGNESIUM
     Indication: PRODUCT USED FOR UNKNOWN INDICATION
     Route: 065
  12. AMITRIPTYLINE [Suspect]
     Active Substance: AMITRIPTYLINE
     Route: 065
  13. NOVOPULMON [Concomitant]
     Active Substance: BUDESONIDE
     Indication: PRODUCT USED FOR UNKNOWN INDICATION
     Dosage: 2 HUBS PER DAY
  14. BACLOFENUM [Concomitant]
     Dosage: 10 MG ? 15 MG ? 25 MG
  15. SELENIUM [Concomitant]
     Active Substance: SELENIUM
     Indication: PRODUCT USED FOR UNKNOWN INDICATION
     Route: 065
  16. ACICLOVIR [Concomitant]
     Active Substance: ACYCLOVIR
     Indication: PRODUCT USED FOR UNKNOWN INDICATION
     Dosage: 1?0?1 FOR FOUR WEEKS
     Route: 065
  17. FOLVERLAN [Concomitant]
     Active Substance: FOLIC ACID
     Indication: PRODUCT USED FOR UNKNOWN INDICATION
  18. CARBAMAZEPINE. [Concomitant]
     Active Substance: CARBAMAZEPINE
     Dosage: 0?1?0
  19. OCREVUS [Suspect]
     Active Substance: OCRELIZUMAB
     Route: 065
  20. DICLOFENAC [Suspect]
     Active Substance: DICLOFENAC
     Indication: BACK PAIN
     Dosage: RETARD
     Route: 054
     Dates: start: 20190122
  21. DICLOFENAC [Suspect]
     Active Substance: DICLOFENAC
     Route: 048
  22. PANTOPRAZOL (PANTOPRAZOLE) [Concomitant]
     Active Substance: PANTOPRAZOLE
     Indication: PRODUCT USED FOR UNKNOWN INDICATION
     Route: 048
  23. AMITRIPTYLINE [Suspect]
     Active Substance: AMITRIPTYLINE
     Route: 065
  24. OCREVUS [Suspect]
     Active Substance: OCRELIZUMAB
     Route: 042
     Dates: start: 20181106
  25. OCREVUS [Suspect]
     Active Substance: OCRELIZUMAB
     Dosage: SECOND DOSE
     Route: 042
     Dates: start: 20180517, end: 20180517

REACTIONS (39)
  - Osteoarthritis [Not Recovered/Not Resolved]
  - Back pain [Recovered/Resolved]
  - Gastroenteritis norovirus [Recovered/Resolved]
  - C-reactive protein increased [Recovering/Resolving]
  - Skin laceration [Recovered/Resolved]
  - Muscle spasticity [Not Recovered/Not Resolved]
  - Neuralgia [Recovered/Resolved]
  - Dizziness [Recovered/Resolved]
  - Abdominal pain upper [Recovered/Resolved]
  - Multiple sclerosis [Not Recovered/Not Resolved]
  - Fatigue [Recovered/Resolved]
  - Acquired diaphragmatic eventration [Not Recovered/Not Resolved]
  - Dyspnoea [Not Recovered/Not Resolved]
  - Terminal insomnia [Recovering/Resolving]
  - Pruritus [Recovered/Resolved]
  - Therapeutic product effect decreased [Recovered/Resolved]
  - Urticaria [Recovered/Resolved]
  - Rash [Recovered/Resolved]
  - Herpes virus infection [Recovered/Resolved]
  - Nasopharyngitis [Not Recovered/Not Resolved]
  - Sleep disorder [Not Recovered/Not Resolved]
  - Meniscus injury [Recovered/Resolved]
  - Migraine [Not Recovered/Not Resolved]
  - Chondropathy [Not Recovered/Not Resolved]
  - Headache [Recovered/Resolved]
  - Infection [Recovered/Resolved]
  - Infrapatellar fat pad inflammation [Not Recovered/Not Resolved]
  - Cholelithiasis [Recovered/Resolved]
  - Infusion related reaction [Recovered/Resolved]
  - Feeling abnormal [Not Recovered/Not Resolved]
  - Chest discomfort [Not Recovered/Not Resolved]
  - Effusion [Not Recovered/Not Resolved]
  - Insomnia [Recovered/Resolved]
  - Dyspepsia [Not Recovered/Not Resolved]
  - Paraesthesia [Recovered/Resolved]
  - Spinal stenosis [Not Recovered/Not Resolved]
  - Memory impairment [Recovered/Resolved]
  - Nausea [Recovered/Resolved]
  - Arthralgia [Not Recovered/Not Resolved]

NARRATIVE: CASE EVENT DATE: 20180503
